FAERS Safety Report 15950121 (Version 1)
Quarter: 2019Q1

REPORT INFORMATION
  Report Type: Spontaneous
  Country: CN (occurrence: CN)
  Receive Date: 20190211
  Receipt Date: 20190211
  Transmission Date: 20190417
  Serious: Yes (Other)
  Sender: FDA-Public Use
  Company Number: CN-PFIZER INC-2019039917

PATIENT
  Age: 3 Year
  Sex: Male
  Weight: 16 kg

DRUGS (2)
  1. SOLU-MEDROL [Suspect]
     Active Substance: METHYLPREDNISOLONE SODIUM SUCCINATE
     Indication: INFECTION
     Dosage: 30 MG, 1X/DAY
     Route: 041
     Dates: start: 20181115, end: 20181115
  2. AMOXICILLIN SODIUM AND CLAVULANATE POTASSIUM [Concomitant]
     Active Substance: AMOXICILLIN\CLAVULANATE POTASSIUM
     Indication: INFECTION
     Dosage: 0.48 G, 3X/DAY
     Route: 041
     Dates: start: 20181115, end: 20181116

REACTIONS (5)
  - Infusion site urticaria [Recovered/Resolved]
  - Flushing [Recovered/Resolved]
  - Breath sounds abnormal [Recovered/Resolved]
  - Drug hypersensitivity [Recovered/Resolved]
  - Pharyngeal erythema [Recovered/Resolved]

NARRATIVE: CASE EVENT DATE: 20181115
